FAERS Safety Report 9633514 (Version 2)
Quarter: 2014Q1

REPORT INFORMATION
  Report Type: Report from Study
  Country: AU (occurrence: AU)
  Receive Date: 20131021
  Receipt Date: 20140124
  Transmission Date: 20141002
  Serious: Yes (Other)
  Sender: FDA-Public Use
  Company Number: PHHY2013AU117177

PATIENT
  Age: 73 Year
  Sex: Female

DRUGS (27)
  1. ACLASTA [Suspect]
     Dosage: 5 MG, UNK
     Route: 042
     Dates: start: 20100914
  2. ACLASTA [Suspect]
     Dosage: 5 MG, UNK
     Route: 042
     Dates: start: 20111019
  3. ATENOLOL [Concomitant]
     Dosage: UNK HALF IN THE MORNING
  4. CHOLECALCIFEROL [Concomitant]
     Dosage: 1 DF, BID
  5. COUMADINE [Concomitant]
     Dosage: 1 MG, ONE IN THE EVENING AS DIRECTED
  6. COUMADINE [Concomitant]
     Dosage: 2 MG, 1 DF, ONE IN THE EVENING AS DIRECTED
  7. COUMADINE [Concomitant]
     Dosage: 5 MG, 1 DF,  ONE IN THE EVENING AS DIRECTED
  8. CREON [Concomitant]
     Dosage: 2 DF, TID
  9. DIAZEPAM [Concomitant]
     Dosage: 2 DF, BID 1 AT 08:00 1 AT 12:00
  10. DOMPERIDONE [Concomitant]
     Dosage: 1 DF, TID
  11. DOXEPIN [Concomitant]
     Dosage: 2 DF, UNK
  12. ENDONE [Concomitant]
     Dosage: UNK HALF 4 TIMES A DAY AS DIRECTED
  13. ENDONE [Concomitant]
     Dosage: 5 MG, TID
  14. FRUSEMIDE [Concomitant]
     Dosage: 1 DF, BID
  15. GLICLAZIDE [Concomitant]
     Dosage: 1 DF, ONE IN THE MORNING
  16. LISINOPRIL [Concomitant]
     Dosage: 1 DF ONE IN THE MORNING
  17. MOVICOL [Concomitant]
     Dosage: 1 DF, ONE IN THE MORNING AS DIRECTED
  18. NEO B12 [Concomitant]
     Dosage: 3 MONTHLY
  19. NICORANDIL [Concomitant]
     Dosage: 1 DF, BID
  20. NITRAZEPAM [Concomitant]
     Dosage: 2 DF, UNK
  21. NORSPAN-M [Concomitant]
     Dosage: 1 EACH 4 DAYS
     Route: 062
  22. OMEPRAZOLE [Concomitant]
     Dosage: 2 DF, UNK
  23. PANADOL OSTEO [Concomitant]
     Dosage: 2 DF, TID
  24. PREGABALIN [Concomitant]
     Dosage: 1 DF, BID
  25. RECTINOL [Concomitant]
     Dosage: UNK APPLY TWICE A DAY AS DIRECTED
  26. SPIRONOLACTONE [Concomitant]
     Dosage: UNK HALF IN THE MORNING
  27. THYROXINE [Concomitant]
     Dosage: UNK ONE IN THE MORNING

REACTIONS (6)
  - Type 2 diabetes mellitus [Unknown]
  - Pulmonary embolism [Unknown]
  - Systemic lupus erythematosus [Unknown]
  - Hypothyroidism [Unknown]
  - Gastrooesophageal reflux disease [Unknown]
  - Hypertension [Unknown]
